FAERS Safety Report 6654731-3 (Version None)
Quarter: 2010Q1

REPORT INFORMATION
  Report Type: 
  Country: None (occurrence: None)
  Receive Date: 20100326
  Receipt Date: 20100315
  Transmission Date: 20100710
  Serious: Yes (Hospitalization, Other)
  Sender: FDA-Public Use
  Company Number: GB-WATSON-2010-03040

PATIENT
  Age: 57 Year
  Sex: Male

DRUGS (3)
  1. METOPROLOL (WATSON LABORATORIES) [Suspect]
     Indication: HYPERTENSION
     Dosage: 200 MG, DAILY
     Route: 065
  2. ENALAPRIL MALEATE [Suspect]
     Indication: HYPERTENSION
     Dosage: 20 MG, DAILY
  3. LICORICE                           /01125801/ [Suspect]
     Indication: DRUG USE FOR UNKNOWN INDICATION

REACTIONS (2)
  - ADRENAL ADENOMA [None]
  - BLOOD ALDOSTERONE INCREASED [None]
